FAERS Safety Report 23611313 (Version 1)
Quarter: 2024Q1

REPORT INFORMATION
  Report Type: Spontaneous
  Country: IE (occurrence: IE)
  Receive Date: 20240308
  Receipt Date: 20240308
  Transmission Date: 20240409
  Serious: Yes (Hospitalization, Other)
  Sender: FDA-Public Use
  Company Number: IE-MYLANLABS-2023M1135038

PATIENT
  Age: 63 Year
  Sex: Male
  Weight: 122 kg

DRUGS (2)
  1. CLOZARIL [Suspect]
     Active Substance: CLOZAPINE
     Indication: Schizophrenia
     Dosage: UNK
     Route: 048
     Dates: start: 20050301
  2. CLOZARIL [Suspect]
     Active Substance: CLOZAPINE
     Dosage: UNK
     Route: 048
     Dates: start: 20231217

REACTIONS (9)
  - Respiratory tract infection [Recovered/Resolved]
  - Eosinophil count decreased [Recovered/Resolved]
  - White blood cell count decreased [Recovered/Resolved]
  - Mean cell haemoglobin increased [Unknown]
  - Mean cell volume increased [Unknown]
  - Red blood cell count decreased [Unknown]
  - Platelet count decreased [Unknown]
  - Influenza [Unknown]
  - Monocyte count decreased [Unknown]

NARRATIVE: CASE EVENT DATE: 20231201
